FAERS Safety Report 14780871 (Version 1)
Quarter: 2018Q2

REPORT INFORMATION
  Report Type: Spontaneous
  Country: US (occurrence: US)
  Receive Date: 20180419
  Receipt Date: 20180419
  Transmission Date: 20180711
  Serious: Yes (Hospitalization, Other)
  Sender: FDA-Public Use
  Company Number: US-GLAXOSMITHKLINE-US2018067044

PATIENT
  Age: 68 Year
  Sex: Female

DRUGS (14)
  1. LOVAZA [Suspect]
     Active Substance: OMEGA-3-ACID ETHYL ESTERS
     Indication: BLOOD CHOLESTEROL INCREASED
     Dosage: 1 G, BID
     Route: 048
     Dates: start: 2003
  2. CALCIUM [Concomitant]
     Active Substance: CALCIUM
  3. ZYRTEC [Concomitant]
     Active Substance: CETIRIZINE HYDROCHLORIDE
  4. LIPITOR [Concomitant]
     Active Substance: ATORVASTATIN CALCIUM
  5. ADVAIR DISKUS [Concomitant]
     Active Substance: FLUTICASONE PROPIONATE\SALMETEROL XINAFOATE
  6. OMEPRAZOLE. [Concomitant]
     Active Substance: OMEPRAZOLE
  7. SINGULAIR [Concomitant]
     Active Substance: MONTELUKAST SODIUM
  8. AMLODIPINE [Concomitant]
     Active Substance: AMLODIPINE BESYLATE
  9. ATENOLOL. [Concomitant]
     Active Substance: ATENOLOL
  10. ALBUTEROL. [Concomitant]
     Active Substance: ALBUTEROL
  11. HYDROCHLOROTHIAZIDE. [Concomitant]
     Active Substance: HYDROCHLOROTHIAZIDE
  12. CYMBALTA [Concomitant]
     Active Substance: DULOXETINE HYDROCHLORIDE
  13. METFORMIN [Concomitant]
     Active Substance: METFORMIN HYDROCHLORIDE
  14. ASPIRIN (BABY) [Concomitant]
     Active Substance: ASPIRIN

REACTIONS (7)
  - Bone pain [Unknown]
  - Therapeutic response unexpected [Unknown]
  - Angina pectoris [Recovered/Resolved]
  - Pain in extremity [Recovering/Resolving]
  - Gait disturbance [Recovering/Resolving]
  - Underdose [Unknown]
  - Bone density increased [Unknown]

NARRATIVE: CASE EVENT DATE: 2008
